FAERS Safety Report 5383928-8 (Version None)
Quarter: 2007Q3

REPORT INFORMATION
  Report Type: 
  Country: None (occurrence: None)
  Receive Date: 20070711
  Receipt Date: 20070705
  Transmission Date: 20080115
  Serious: Yes (Death, Hospitalization)
  Sender: FDA-Public Use
  Company Number: US-BAYER-200711847BWH

PATIENT
  Sex: Male

DRUGS (2)
  1. CIPRO [Suspect]
     Indication: INFECTION
  2. LEVAQUIN [Suspect]
     Indication: DRUG USE FOR UNKNOWN INDICATION

REACTIONS (5)
  - ASTHENIA [None]
  - DYSPHAGIA [None]
  - EATING DISORDER [None]
  - RENAL FAILURE [None]
  - WEIGHT DECREASED [None]
